FAERS Safety Report 25837238 (Version 2)
Quarter: 2025Q4

REPORT INFORMATION
  Report Type: Spontaneous
  Country: US (occurrence: None)
  Receive Date: 20250923
  Receipt Date: 20251010
  Transmission Date: 20260118
  Serious: No
  Sender: INCYTE
  Company Number: US-INCYTE CORPORATION-2025IN010192

PATIENT
  Age: 82 Year

DRUGS (2)
  1. JAKAFI [Suspect]
     Active Substance: RUXOLITINIB
     Indication: Myeloproliferative neoplasm
     Dosage: 10 MILLIGRAM, BID
  2. JAKAFI [Suspect]
     Active Substance: RUXOLITINIB
     Dosage: UNK

REACTIONS (6)
  - Joint swelling [Unknown]
  - Dyspnoea [Not Recovered/Not Resolved]
  - COVID-19 [Unknown]
  - Haemoglobin decreased [Unknown]
  - Glomerular filtration rate decreased [Unknown]
  - Off label use [Unknown]
